FAERS Safety Report 25017889 (Version 1)
Quarter: 2025Q1

REPORT INFORMATION
  Report Type: Spontaneous
  Country: DE (occurrence: DE)
  Receive Date: 20250227
  Receipt Date: 20250227
  Transmission Date: 20250409
  Serious: Yes (Hospitalization, Other)
  Sender: PFIZER
  Company Number: None

PATIENT
  Age: 34 Year
  Sex: Female

DRUGS (5)
  1. NAFARELIN ACETATE [Suspect]
     Active Substance: NAFARELIN ACETATE
     Indication: Assisted reproductive technology
     Dosage: 0.4 MG, 1X/DAY
     Dates: start: 20240724, end: 20240818
  2. NAFARELIN ACETATE [Suspect]
     Active Substance: NAFARELIN ACETATE
     Dosage: 0.2 MG, 1X/DAY
     Dates: start: 20240819
  3. MENOTROPINS [Suspect]
     Active Substance: MENOTROPINS
     Indication: Assisted reproductive technology
     Dosage: 200 IU, 1X/DAY
     Dates: start: 20240809, end: 20240811
  4. MENOTROPINS [Suspect]
     Active Substance: MENOTROPINS
     Dosage: 150 IU, 1X/DAY
     Dates: start: 20240812, end: 20240818
  5. CHORIOGONADOTROPIN ALFA [Suspect]
     Active Substance: CHORIOGONADOTROPIN ALFA
     Indication: Assisted reproductive technology
     Dates: start: 20240819

REACTIONS (4)
  - Abdominal pain lower [Recovered/Resolved]
  - Waist circumference increased [Recovered/Resolved]
  - Ovarian hyperstimulation syndrome [Recovered/Resolved]
  - Off label use [Unknown]

NARRATIVE: CASE EVENT DATE: 20240724
